FAERS Safety Report 5197345-7 (Version None)
Quarter: 2006Q4

REPORT INFORMATION
  Report Type: 
  Country: None (occurrence: None)
  Receive Date: 20061228
  Receipt Date: 20061219
  Transmission Date: 20070319
  Serious: Yes (Hospitalization)
  Sender: FDA-Public Use
  Company Number: E2090-00154-SPO-JP

PATIENT
  Age: 6 Year
  Sex: Female

DRUGS (1)
  1. EXCEGRAN(ZONISAMIDE) [Suspect]
     Indication: EPILEPSY
     Dosage: 60 MG, ORAL
     Route: 048
     Dates: start: 20061116, end: 20061128

REACTIONS (14)
  - CONJUNCTIVAL HYPERAEMIA [None]
  - COUGH [None]
  - DYSURIA [None]
  - EATING DISORDER [None]
  - ERYTHEMA INFECTIOSUM [None]
  - ERYTHEMA MULTIFORME [None]
  - GINGIVAL EROSION [None]
  - LIP EROSION [None]
  - MUCOSAL EROSION [None]
  - OCULOMUCOCUTANEOUS SYNDROME [None]
  - OEDEMA [None]
  - STEVENS-JOHNSON SYNDROME [None]
  - STREPTOCOCCAL SEROLOGY POSITIVE [None]
  - VAGINAL ERYTHEMA [None]
